FAERS Safety Report 8936295 (Version 1)
Quarter: 2012Q4

REPORT INFORMATION
  Report Type: 
  Country: US (occurrence: US)
  Receive Date: 20121130
  Receipt Date: 20121130
  Transmission Date: 20130627
  Serious: No
  Sender: FDA-Public Use
  Company Number: US-009507513-1211USA011990

PATIENT

DRUGS (1)
  1. AZASITE [Suspect]
     Dosage: 1 drop in each eye, qd
     Route: 047
     Dates: start: 20121114

REACTIONS (3)
  - Underdose [Unknown]
  - No adverse event [Unknown]
  - Product quality issue [Unknown]
